FAERS Safety Report 24174331 (Version 6)
Quarter: 2025Q1

REPORT INFORMATION
  Report Type: Spontaneous
  Country: US (occurrence: US)
  Receive Date: 20240805
  Receipt Date: 20250222
  Transmission Date: 20250409
  Serious: No
  Sender: SANOFI AVENTIS
  Company Number: US-SA-SAC20240801001027

PATIENT
  Age: 59 Year
  Sex: Female
  Weight: 74.8 kg

DRUGS (22)
  1. DUPIXENT [Suspect]
     Active Substance: DUPILUMAB
     Indication: Illness
     Dosage: 300 MG, QOW
     Route: 058
  2. DUPIXENT [Suspect]
     Active Substance: DUPILUMAB
     Indication: Dermatitis atopic
     Dosage: 300 MG, QOW
     Route: 058
     Dates: start: 20250201
  3. NAPROXEN [Concomitant]
     Active Substance: NAPROXEN
  4. INSULIN LISPRO JUNIOR KWIKPEN [Concomitant]
     Active Substance: INSULIN LISPRO
  5. LANTUS SOLOSTAR [Concomitant]
     Active Substance: INSULIN GLARGINE
  6. ATORVASTATIN CALCIUM [Concomitant]
     Active Substance: ATORVASTATIN CALCIUM
  7. PREVACID [Concomitant]
     Active Substance: LANSOPRAZOLE
  8. ASPIRIN [Concomitant]
     Active Substance: ASPIRIN
  9. ENALAPRIL MALEATE [Concomitant]
     Active Substance: ENALAPRIL MALEATE
  10. FAMOTIDINE [Concomitant]
     Active Substance: FAMOTIDINE
  11. VITAMIN D3 [Concomitant]
     Active Substance: CHOLECALCIFEROL
  12. VITAMIN D2 [Concomitant]
     Active Substance: ERGOCALCIFEROL
  13. MELOXICAM [Concomitant]
     Active Substance: MELOXICAM
  14. IPRATROPIUM BROMIDE [Concomitant]
     Active Substance: IPRATROPIUM BROMIDE
  15. NIX [Concomitant]
     Active Substance: PERMETHRIN
  16. AMOXICILLIN [Concomitant]
     Active Substance: AMOXICILLIN
  17. LANSOPRAZOLE [Concomitant]
     Active Substance: LANSOPRAZOLE
  18. GABAPENTIN [Concomitant]
     Active Substance: GABAPENTIN
  19. LICE TREATMENT [Concomitant]
  20. ACETAMINOPHEN\HYDROCODONE [Concomitant]
     Active Substance: ACETAMINOPHEN\HYDROCODONE
  21. BUPROPION [Concomitant]
     Active Substance: BUPROPION
  22. TIZANIDINE HYDROCHLORIDE [Concomitant]
     Active Substance: TIZANIDINE HYDROCHLORIDE

REACTIONS (9)
  - Formication [Unknown]
  - Cough [Unknown]
  - Influenza [Unknown]
  - Nasopharyngitis [Unknown]
  - Pruritus [Not Recovered/Not Resolved]
  - Urticaria [Unknown]
  - Rash [Unknown]
  - Dermatitis atopic [Unknown]
  - Product dose omission issue [Unknown]

NARRATIVE: CASE EVENT DATE: 20240101
